FAERS Safety Report 13190572 (Version 2)
Quarter: 2017Q1

REPORT INFORMATION
  Report Type: Spontaneous
  Country: JP (occurrence: JP)
  Receive Date: 20170206
  Receipt Date: 20170221
  Transmission Date: 20170428
  Serious: Yes (Hospitalization)
  Sender: FDA-Public Use
  Company Number: JP-GLAXOSMITHKLINE-JP2017JPN003097

PATIENT
  Age: 42 Year
  Sex: Female
  Weight: 47 kg

DRUGS (8)
  1. ETHYL LOFLAZEPATE [Concomitant]
     Active Substance: ETHYL LOFLAZEPATE
     Dosage: UNK
  2. SODIUM VALPROATE SR [Concomitant]
     Indication: BIPOLAR DISORDER
     Dosage: UNK
  3. SULPIRIDE [Concomitant]
     Active Substance: SULPIRIDE
     Dosage: UNK
  4. LAMICTAL [Suspect]
     Active Substance: LAMOTRIGINE
     Indication: BIPOLAR DISORDER
     Dosage: 25 MG, QOD
     Route: 048
     Dates: start: 20150403, end: 20150416
  5. IMIPRAMINE HYDROCHLORIDE. [Concomitant]
     Active Substance: IMIPRAMINE HYDROCHLORIDE
     Dosage: UNK
  6. LEVOTHYROXINE SODIUM HYDRATE [Concomitant]
     Active Substance: LEVOTHYROXINE SODIUM
     Dosage: UNK
  7. LAMICTAL [Suspect]
     Active Substance: LAMOTRIGINE
     Dosage: 25 MG, 1D
     Route: 048
     Dates: start: 20150417, end: 20150426
  8. PAXIL CR [Concomitant]
     Active Substance: PAROXETINE HYDROCHLORIDE
     Dosage: 12.5 MG, QD

REACTIONS (4)
  - Eczema [Recovered/Resolved]
  - Pyrexia [Recovered/Resolved]
  - Drug eruption [Recovered/Resolved]
  - Erythema [Recovered/Resolved]

NARRATIVE: CASE EVENT DATE: 20150418
